FAERS Safety Report 11647265 (Version 3)
Quarter: 2015Q4

REPORT INFORMATION
  Report Type: Report from Study
  Country: FR (occurrence: FR)
  Receive Date: 20151021
  Receipt Date: 20151119
  Transmission Date: 20160304
  Serious: Yes (Hospitalization)
  Sender: FDA-Public Use
  Company Number: FR-009507513-1508FRA003968

PATIENT
  Age: 71 Year
  Sex: Male
  Weight: 71 kg

DRUGS (2)
  1. PEMBROLIZUMAB. [Suspect]
     Active Substance: PEMBROLIZUMAB
     Indication: METASTATIC MALIGNANT MELANOMA
     Dosage: 137 MG (2 MG/KG), Q3W
     Route: 042
     Dates: start: 20150605, end: 20150605
  2. PEMBROLIZUMAB. [Suspect]
     Active Substance: PEMBROLIZUMAB
     Dosage: 137 MG (2 MG/KG), Q3W
     Route: 042
     Dates: start: 20151014, end: 20151014

REACTIONS (4)
  - Hypersensitivity vasculitis [Recovered/Resolved]
  - Eczema [Unknown]
  - Diarrhoea [Recovered/Resolved]
  - Nephrotic syndrome [Not Recovered/Not Resolved]

NARRATIVE: CASE EVENT DATE: 20150720
